FAERS Safety Report 16499109 (Version 3)
Quarter: 2019Q3

REPORT INFORMATION
  Report Type: Spontaneous
  Country: JP (occurrence: JP)
  Receive Date: 20190701
  Receipt Date: 20190917
  Transmission Date: 20191004
  Serious: Yes (Other)
  Sender: FDA-Public Use
  Company Number: JP-AMGEN-JPNSP2019102802

PATIENT
  Age: 81 Year
  Sex: Female

DRUGS (3)
  1. NESP [Suspect]
     Active Substance: DARBEPOETIN ALFA
     Indication: NEPHROGENIC ANAEMIA
     Dosage: 180 MICROGRAM, Q4WK
     Route: 058
     Dates: start: 20190208, end: 20190613
  2. MIRCERA [Concomitant]
     Active Substance: METHOXY POLYETHYLENE GLYCOL-EPOETIN BETA
     Indication: NEPHROGENIC ANAEMIA
     Dosage: 250 MICROGRAM, Q4WK
     Route: 058
     Dates: start: 20180705, end: 20190124
  3. NESP [Suspect]
     Active Substance: DARBEPOETIN ALFA
     Dosage: 120-180 UG, 1X/2-4 WEEKS
     Route: 058
     Dates: start: 20120710, end: 20180621

REACTIONS (1)
  - Aplasia pure red cell [Unknown]

NARRATIVE: CASE EVENT DATE: 20190613
